FAERS Safety Report 6604225-6 (Version None)
Quarter: 2010Q1

REPORT INFORMATION
  Report Type: 
  Country: None (occurrence: None)
  Receive Date: 20100226
  Receipt Date: 20091113
  Transmission Date: 20100710
  Serious: No
  Sender: FDA-Public Use
  Company Number: A0796392A

PATIENT
  Age: 51 Year
  Sex: Female

DRUGS (6)
  1. LAMICTAL CD [Suspect]
     Indication: DEPRESSION
     Route: 048
     Dates: start: 20090508
  2. MIRTAZAPINE [Concomitant]
  3. AMBIEN [Concomitant]
  4. ALPRAZOLAM [Concomitant]
  5. ACYCLOVIR [Concomitant]
  6. LOVASTATIN [Concomitant]

REACTIONS (1)
  - EYE SWELLING [None]
